FAERS Safety Report 18688144 (Version 1)
Quarter: 2020Q4

REPORT INFORMATION
  Report Type: Spontaneous
  Country: US (occurrence: US)
  Receive Date: 20201230
  Receipt Date: 20201230
  Transmission Date: 20210114
  Serious: Yes (Other)
  Sender: FDA-Public Use
  Company Number: None

PATIENT
  Age: 44 Year
  Sex: Male
  Weight: 123.75 kg

DRUGS (2)
  1. LEVOTHYROXINE. [Suspect]
     Active Substance: LEVOTHYROXINE
  2. DULOXETINE. [Suspect]
     Active Substance: DULOXETINE

REACTIONS (2)
  - Drug interaction [None]
  - Anxiety [None]

NARRATIVE: CASE EVENT DATE: 20201201
